FAERS Safety Report 4502473-2 (Version None)
Quarter: 2004Q4

REPORT INFORMATION
  Report Type: 
  Country: None (occurrence: None)
  Receive Date: 20041112
  Receipt Date: 20041026
  Transmission Date: 20050328
  Serious: No
  Sender: FDA-Public Use
  Company Number: 9181

PATIENT
  Age: 63 Year
  Sex: Male

DRUGS (2)
  1. ATRACURIUM [Suspect]
     Indication: INDUCTION OF ANAESTHESIA
     Dosage: 30 MG IV
     Route: 042
     Dates: start: 20040826
  2. SUCCINYLCHOLINE CHLORIDE [Concomitant]

REACTIONS (1)
  - DRUG INEFFECTIVE [None]
